FAERS Safety Report 7221838-1 (Version None)
Quarter: 2011Q1

REPORT INFORMATION
  Report Type: 
  Country: None (occurrence: None)
  Receive Date: 20110112
  Receipt Date: 20110104
  Transmission Date: 20110831
  Serious: Yes (Other)
  Sender: FDA-Public Use
  Company Number: A0903027A

PATIENT
  Age: 62 Year
  Sex: Male

DRUGS (1)
  1. PROMACTA [Suspect]
     Indication: IDIOPATHIC THROMBOCYTOPENIC PURPURA
     Dosage: 25MG PER DAY
     Dates: start: 20100101, end: 20100201

REACTIONS (2)
  - B-CELL LYMPHOMA [None]
  - NEOPLASM MALIGNANT [None]
